FAERS Safety Report 5805268-2 (Version None)
Quarter: 2008Q3

REPORT INFORMATION
  Report Type: 
  Country: None (occurrence: None)
  Receive Date: 20080703
  Receipt Date: 20080617
  Transmission Date: 20090109
  Serious: Yes (Hospitalization)
  Sender: FDA-Public Use
  Company Number: 2008001137

PATIENT
  Age: 63 Year
  Sex: Male
  Weight: 91.6 kg

DRUGS (5)
  1. ERLOTINIB         (ERLOTINIB) [Suspect]
     Indication: OESOPHAGEAL CARCINOMA
     Dosage: (100 MG,QD), ORAL
     Route: 048
     Dates: start: 20080326
  2. BEVACIZUMAB (INJECTION FOR INFUSION) [Suspect]
     Dosage: (15 MG/KG), INTRAVENOUS
     Route: 042
     Dates: start: 20080325
  3. PACLITAXEL [Suspect]
     Dosage: (200 MG/M2), INTRAVENOUS
     Route: 042
     Dates: start: 20080325
  4. CARBOPLATIN [Suspect]
     Dosage: INTRAVENOUS
     Route: 042
     Dates: start: 20080325, end: 20080325
  5. FLUOROURACIL [Suspect]
     Dates: start: 20080325, end: 20080325

REACTIONS (4)
  - INFECTION [None]
  - PERFORMANCE STATUS DECREASED [None]
  - WOUND DEHISCENCE [None]
  - WOUND EVISCERATION [None]
